FAERS Safety Report 7126494-9 (Version None)
Quarter: 2010Q4

REPORT INFORMATION
  Report Type: 
  Country: None (occurrence: None)
  Receive Date: 20101129
  Receipt Date: 20101115
  Transmission Date: 20110411
  Serious: Yes (Life-Threatening)
  Sender: FDA-Public Use
  Company Number: CA-MYLANLABS-2010S1021284

PATIENT
  Age: 72 Year
  Sex: Female

DRUGS (2)
  1. METOPROLOL [Suspect]
     Indication: OVERDOSE
     Route: 048
  2. HYDROCHLOROTHIAZIDE [Suspect]

REACTIONS (3)
  - BRADYCARDIA [None]
  - HYPOTENSION [None]
  - OVERDOSE [None]
